FAERS Safety Report 12237345 (Version 1)
Quarter: 2016Q2

REPORT INFORMATION
  Report Type: Spontaneous
  Country: US (occurrence: None)
  Receive Date: 20160404
  Receipt Date: 20160404
  Transmission Date: 20160815
  Serious: No
  Sender: FDA-Public Use
  Company Number: None

PATIENT
  Age: 69 Year
  Sex: Male
  Weight: 108.86 kg

DRUGS (12)
  1. OMEPRAZOLE (PRILOSEC) [Concomitant]
  2. METFORMIN HCL [Concomitant]
     Active Substance: METFORMIN HYDROCHLORIDE
  3. EXCEDRIN [Concomitant]
     Active Substance: ACETAMINOPHEN\ASPIRIN\CAFFEINE
  4. ATORVASTATIN CALCIUM (LIPITOR) [Concomitant]
  5. MONTELUKAST SODIUM (SINGULAR) [Concomitant]
  6. VENTOLIN [Concomitant]
     Active Substance: ALBUTEROL SULFATE
  7. IRON [Concomitant]
     Active Substance: IRON
  8. FERROUS SULFATE. [Concomitant]
     Active Substance: FERROUS SULFATE
  9. AMLODIPINE BESYLATE (NORVASC) [Concomitant]
  10. TEMAZEPAM CAPS 30MG, 30 MG [Suspect]
     Active Substance: TEMAZEPAM
     Indication: INSOMNIA
     Route: 048
  11. IBUPROFEN. [Concomitant]
     Active Substance: IBUPROFEN
  12. FOSINOPRIL HTCZ [Concomitant]

REACTIONS (5)
  - Reaction to drug excipients [None]
  - Product substitution issue [None]
  - Insomnia [None]
  - Impaired driving ability [None]
  - Drug effect variable [None]
